FAERS Safety Report 5120371-0 (Version None)
Quarter: 2006Q4

REPORT INFORMATION
  Report Type: 
  Country: None (occurrence: None)
  Receive Date: 20061004
  Receipt Date: 20060210
  Transmission Date: 20070319
  Serious: Yes (Death, Life-Threatening, Hospitalization)
  Sender: FDA-Public Use
  Company Number: MX-BRISTOL-MYERS SQUIBB COMPANY-13282942

PATIENT
  Age: 62 Year
  Sex: Male

DRUGS (8)
  1. REMICADE [Suspect]
     Indication: RHEUMATOID ARTHRITIS
     Route: 042
     Dates: start: 20050316, end: 20051220
  2. METHOTREXATE [Suspect]
     Indication: RHEUMATOID ARTHRITIS
     Dosage: 1996 TO 22-SEP-2005: DOSE WAS 12.5 MG PER WEEK ORALLY
     Route: 030
     Dates: start: 19960101, end: 20051224
  3. DEFLAZACORT [Concomitant]
     Indication: RHEUMATOID ARTHRITIS
     Route: 048
     Dates: start: 20040801, end: 20051229
  4. OMEPRAZOLE [Concomitant]
     Route: 048
     Dates: start: 20050823, end: 20051229
  5. FOLIC ACID [Concomitant]
     Dates: start: 20050321, end: 20051229
  6. MELOXICAM [Concomitant]
     Route: 048
     Dates: start: 20040801
  7. CALCIUM GLUCONATE [Concomitant]
     Route: 048
     Dates: start: 20040101
  8. METOCLOPRAMIDE [Concomitant]
     Route: 048
     Dates: start: 20050829

REACTIONS (2)
  - PERITONEAL TUBERCULOSIS [None]
  - SEPTIC SHOCK [None]
